FAERS Safety Report 5745787-0 (Version None)
Quarter: 2008Q2

REPORT INFORMATION
  Report Type: 
  Country: None (occurrence: None)
  Receive Date: 20080520
  Receipt Date: 20080508
  Transmission Date: 20081010
  Serious: Yes (Life-Threatening, Other)
  Sender: FDA-Public Use
  Company Number: 163-21880-08031195

PATIENT
  Age: 87 Year
  Sex: Male

DRUGS (3)
  1. REVLIMID [Suspect]
     Indication: MYELODYSPLASTIC SYNDROME
     Dosage: 5 MG, 1 IN 1 D, ORAL : 10 MG, 1 IN 1 D, ORAL
     Route: 048
     Dates: start: 20080117, end: 20080228
  2. REVLIMID [Suspect]
     Indication: MYELODYSPLASTIC SYNDROME
     Dosage: 5 MG, 1 IN 1 D, ORAL : 10 MG, 1 IN 1 D, ORAL
     Route: 048
     Dates: start: 20080401
  3. PROCRIT [Concomitant]

REACTIONS (1)
  - THROMBOCYTOPENIA [None]
